FAERS Safety Report 13229625 (Version 1)
Quarter: 2017Q1

REPORT INFORMATION
  Report Type: Spontaneous
  Country: FR (occurrence: FR)
  Receive Date: 20170214
  Receipt Date: 20170214
  Transmission Date: 20170428
  Serious: Yes (Death, Hospitalization, Other)
  Sender: FDA-Public Use
  Company Number: FR-ASTRAZENECA-2017SE14783

PATIENT
  Age: 32125 Day
  Sex: Male

DRUGS (11)
  1. CRESTOR [Suspect]
     Active Substance: ROSUVASTATIN CALCIUM
     Route: 048
  2. CORVASAL [Concomitant]
     Active Substance: LINSIDOMINE
  3. CANDESARTAN [Concomitant]
     Active Substance: CANDESARTAN
  4. IKOREL [Concomitant]
     Active Substance: NICORANDIL
  5. MOPRAL [Concomitant]
     Active Substance: OMEPRAZOLE SODIUM
  6. TEMESTA [Concomitant]
     Active Substance: LORAZEPAM
  7. PREVISCAN [Interacting]
     Active Substance: FLUINDIONE
     Dosage: 0.5 DF/D SIX DAYS PER WEEK
     Route: 065
  8. PREVISCAN [Interacting]
     Active Substance: FLUINDIONE
     Dosage: 0.25 DF ON THE SEVENTH DAY
     Route: 065
  9. CARDENSIEL [Concomitant]
     Active Substance: BISOPROLOL FUMARATE
  10. CREON [Concomitant]
     Active Substance: PANCRELIPASE AMYLASE\PANCRELIPASE LIPASE\PANCRELIPASE PROTEASE
  11. DIAMICRON [Concomitant]
     Active Substance: GLICLAZIDE

REACTIONS (5)
  - Cerebral haematoma [Fatal]
  - Drug interaction [Unknown]
  - Intraventricular haemorrhage [Fatal]
  - Lower respiratory tract congestion [Unknown]
  - Multiple organ dysfunction syndrome [Unknown]

NARRATIVE: CASE EVENT DATE: 20161204
